FAERS Safety Report 5474984-7 (Version None)
Quarter: 2007Q4

REPORT INFORMATION
  Report Type: 
  Country: None (occurrence: None)
  Receive Date: 20071002
  Receipt Date: 20070917
  Transmission Date: 20080405
  Serious: Yes (Hospitalization)
  Sender: FDA-Public Use
  Company Number: US-ELI_LILLY_AND_COMPANY-US200709003595

PATIENT
  Age: 72 Year
  Sex: Female

DRUGS (6)
  1. EVISTA [Suspect]
     Dosage: 60 MG, DAILY (1/D)
  2. TRICOR [Concomitant]
     Dosage: UNK, DAILY (1/D)
  3. ZOCOR [Concomitant]
     Dosage: UNK, DAILY (1/D)
  4. CALCIUM [Concomitant]
     Dosage: 1200 MG, DAILY (1/D)
  5. VITAMIN D [Concomitant]
     Dosage: 900 IU, UNK
  6. PREVACID [Concomitant]
     Dosage: UNK, DAILY (1/D)

REACTIONS (5)
  - BLOOD CHOLESTEROL INCREASED [None]
  - BLOOD TRIGLYCERIDES INCREASED [None]
  - HIP FRACTURE [None]
  - POST PROCEDURAL COMPLICATION [None]
  - TIBIA FRACTURE [None]
